FAERS Safety Report 7465476-4 (Version None)
Quarter: 2011Q2

REPORT INFORMATION
  Report Type: 
  Country: None (occurrence: None)
  Receive Date: 20110509
  Receipt Date: 20110427
  Transmission Date: 20111010
  Serious: Yes (Other)
  Sender: FDA-Public Use
  Company Number: US-BAYER-2011-037020

PATIENT
  Sex: Male

DRUGS (1)
  1. HELIXATE FS [Suspect]
     Indication: HAEMOPHILIA

REACTIONS (1)
  - ANTI FACTOR VIII ANTIBODY POSITIVE [None]
